FAERS Safety Report 4852564-1 (Version None)
Quarter: 2005Q4

REPORT INFORMATION
  Report Type: 
  Country: None (occurrence: None)
  Receive Date: 20051123
  Receipt Date: 20041015
  Transmission Date: 20060501
  Serious: Yes (Death)
  Sender: FDA-Public Use
  Company Number: 05USA0067

PATIENT
  Age: 52 Year
  Sex: Male

DRUGS (1)
  1. GLIADEL [Suspect]
     Indication: BRAIN NEOPLASM
     Dates: start: 20021203

REACTIONS (1)
  - DEATH [None]
